FAERS Safety Report 9614282 (Version 1)
Quarter: 2013Q4

REPORT INFORMATION
  Report Type: Spontaneous
  Country: US (occurrence: US)
  Receive Date: 20131011
  Receipt Date: 20131011
  Transmission Date: 20140711
  Serious: No
  Sender: FDA-Public Use
  Company Number: US-009507513-1310USA004535

PATIENT
  Sex: Male

DRUGS (1)
  1. DULERA [Suspect]
     Dosage: INHALER (EA) 2 PUFFS TWICE A DAY.
     Route: 055

REACTIONS (2)
  - Dyspnoea [Unknown]
  - Drug ineffective [Unknown]
